FAERS Safety Report 9343077 (Version 2)
Quarter: 2014Q1

REPORT INFORMATION
  Report Type: Spontaneous
  Country: US (occurrence: US)
  Receive Date: 20130611
  Receipt Date: 20140312
  Transmission Date: 20141002
  Serious: Yes (Hospitalization, Other)
  Sender: FDA-Public Use
  Company Number: US-B.I. PHARMACEUTICALS,INC./RIDGEFIELD-2013-BI-16247BP

PATIENT
  Sex: Female
  Weight: 51.26 kg

DRUGS (9)
  1. PRADAXA [Suspect]
     Indication: CEREBROVASCULAR ACCIDENT PROPHYLAXIS
     Dosage: 150 MG
     Route: 065
     Dates: start: 20111116, end: 20111225
  2. PRADAXA [Suspect]
     Indication: THROMBOSIS PROPHYLAXIS
  3. DIGOXIN [Concomitant]
     Dosage: 0.125 MG
     Route: 065
     Dates: start: 2007, end: 2012
  4. LOVASTATIN [Concomitant]
     Dosage: 40 MG
     Route: 065
     Dates: start: 2007, end: 2012
  5. ATENOLOL [Concomitant]
     Dosage: 50 MG
     Route: 065
     Dates: start: 2007, end: 2012
  6. POTASSIUM CHLORIDE [Concomitant]
     Route: 065
  7. FUROSEMIDE [Concomitant]
     Route: 065
     Dates: start: 2011, end: 2012
  8. ISOSORBIDE MONONITRATE [Concomitant]
     Dosage: 15 MG
     Route: 065
  9. BABY ASPIRIN [Concomitant]
     Route: 065

REACTIONS (4)
  - Gastrointestinal haemorrhage [Unknown]
  - Respiratory failure [Unknown]
  - Retinal haemorrhage [Unknown]
  - Contusion [Unknown]
